FAERS Safety Report 24585258 (Version 2)
Quarter: 2024Q4

REPORT INFORMATION
  Report Type: Spontaneous
  Country: US (occurrence: US)
  Receive Date: 20241106
  Receipt Date: 20241122
  Transmission Date: 20250114
  Serious: Yes (Hospitalization)
  Sender: TEVA
  Company Number: US-TEVA-VS-3260714

PATIENT
  Age: 81 Year
  Sex: Male

DRUGS (1)
  1. LEFLUNOMIDE [Suspect]
     Active Substance: LEFLUNOMIDE
     Indication: Rheumatoid arthritis
     Route: 065

REACTIONS (6)
  - Wound dehiscence [Recovered/Resolved]
  - Wound infection pseudomonas [Recovered/Resolved]
  - Serratia infection [Recovered/Resolved]
  - Postoperative wound infection [Recovering/Resolving]
  - Enterococcal infection [Recovered/Resolved]
  - Device extrusion [Unknown]
